FAERS Safety Report 26126000 (Version 1)
Quarter: 2025Q4

REPORT INFORMATION
  Report Type: Report from Study
  Country: US (occurrence: US)
  Receive Date: 20251205
  Receipt Date: 20251205
  Transmission Date: 20260117
  Serious: Yes (Other)
  Sender: ABBVIE
  Company Number: US-ABBVIE-6535246

PATIENT
  Sex: Female

DRUGS (1)
  1. RINVOQ [Suspect]
     Active Substance: UPADACITINIB
     Indication: Rheumatoid arthritis
     Route: 048
     Dates: start: 20241225

REACTIONS (7)
  - Systemic lupus erythematosus [Unknown]
  - Acne [Unknown]
  - Hepatic enzyme increased [Unknown]
  - Stress [Unknown]
  - Lyme disease [Unknown]
  - Dry eye [Unknown]
  - Bedridden [Unknown]
